FAERS Safety Report 24534430 (Version 1)
Quarter: 2024Q4

REPORT INFORMATION
  Report Type: Report from Study
  Country: US (occurrence: US)
  Receive Date: 20241022
  Receipt Date: 20241022
  Transmission Date: 20250115
  Serious: No
  Sender: ASTELLAS
  Company Number: US-ASTELLAS-2024-AER-012982

PATIENT

DRUGS (2)
  1. AVACINCAPTAD PEGOL [Suspect]
     Active Substance: AVACINCAPTAD PEGOL
     Indication: Product used for unknown indication
     Dosage: DOSE: 1 VIAL?STRENGTH: 2 MG 1 ML OF 20 MG/ML
     Route: 065
  2. AVACINCAPTAD PEGOL [Suspect]
     Active Substance: AVACINCAPTAD PEGOL

REACTIONS (3)
  - Intercepted product preparation error [Unknown]
  - Device issue [Unknown]
  - Syringe issue [Unknown]
